FAERS Safety Report 6406374-4 (Version None)
Quarter: 2009Q4

REPORT INFORMATION
  Report Type: 
  Country: None (occurrence: None)
  Receive Date: 20091019
  Receipt Date: 20091014
  Transmission Date: 20100525
  Serious: Yes (Other)
  Sender: FDA-Public Use
  Company Number: CHPA2009US18926

PATIENT
  Age: 46 Year
  Sex: Female
  Weight: 83.447 kg

DRUGS (2)
  1. BENEFIBER W/ WHEAT DEXTRIN (NCH) [Suspect]
     Indication: NUTRITIONAL SUPPORT
     Dosage: 1 STICK, ONCE A DAY
     Route: 048
     Dates: start: 20090901, end: 20090901
  2. BENEFIBER W/ WHEAT DEXTRIN (NCH) [Suspect]
     Dosage: 2 TO 3 STICKS IN A DAY
     Route: 048
     Dates: start: 20090901, end: 20090901

REACTIONS (4)
  - DIARRHOEA [None]
  - IRRITABLE BOWEL SYNDROME [None]
  - MALAISE [None]
  - SKIN FISSURES [None]
